FAERS Safety Report 4696144-X (Version None)
Quarter: 2005Q2

REPORT INFORMATION
  Report Type: 
  Country: None (occurrence: None)
  Receive Date: 20050620
  Receipt Date: 20050606
  Transmission Date: 20051028
  Serious: Yes (Life-Threatening, Hospitalization)
  Sender: FDA-Public Use
  Company Number: 2005086119

PATIENT
  Age: 1 Year
  Sex: Male

DRUGS (1)
  1. ZITHROMAX [Suspect]
     Indication: BRONCHITIS
     Dosage: ORAL
     Route: 048

REACTIONS (1)
  - PNEUMOCOCCAL SEPSIS [None]
